FAERS Safety Report 8826583 (Version 1)
Quarter: 2012Q4

REPORT INFORMATION
  Report Type: 
  Country: GB (occurrence: GB)
  Receive Date: 20121007
  Receipt Date: 20121007
  Transmission Date: 20130627
  Serious: Yes (Other)
  Sender: FDA-Public Use
  Company Number: GB-MYLANLABS-2012S1019964

PATIENT
  Sex: Male
  Weight: 80 kg

DRUGS (1)
  1. CIPROFLOXACIN [Suspect]
     Indication: PRODUCT USED FOR UNKNOWN INDICATION
     Route: 048
     Dates: start: 20120903, end: 20120910

REACTIONS (4)
  - Joint dislocation [Unknown]
  - Tendon pain [Unknown]
  - Arthropathy [Recovering/Resolving]
  - Pain in extremity [Unknown]
